FAERS Safety Report 5629490-3 (Version None)
Quarter: 2008Q1

REPORT INFORMATION
  Report Type: 
  Country: None (occurrence: None)
  Receive Date: 20080215
  Receipt Date: 20080215
  Transmission Date: 20080703
  Serious: Yes (Hospitalization)
  Sender: FDA-Public Use
  Company Number: None

PATIENT
  Age: 38 Year
  Sex: Male
  Weight: 84.8226 kg

DRUGS (1)
  1. ABILIFY [Suspect]
     Indication: DEMENTIA
     Dosage: 20MG QD PO
     Route: 048
     Dates: start: 20071006

REACTIONS (3)
  - ATAXIA [None]
  - BLOOD CREATINE PHOSPHOKINASE INCREASED [None]
  - CONFUSIONAL STATE [None]
